FAERS Safety Report 7550238-X (Version None)
Quarter: 2011Q2

REPORT INFORMATION
  Report Type: 
  Country: None (occurrence: None)
  Receive Date: 20110615
  Receipt Date: 20110606
  Transmission Date: 20111010
  Serious: Yes (Hospitalization, Other)
  Sender: FDA-Public Use
  Company Number: US-ASTRAZENECA-2011SE34508

PATIENT
  Age: 50 Year
  Sex: Female

DRUGS (1)
  1. PULMICORT FLEXHALER [Suspect]
     Route: 055

REACTIONS (5)
  - HERNIA [None]
  - HERNIA REPAIR [None]
  - INTUSSUSCEPTION [None]
  - MULTIPLE SCLEROSIS [None]
  - HYSTERECTOMY [None]
